FAERS Safety Report 8846002 (Version 1)
Quarter: 2012Q4

REPORT INFORMATION
  Report Type: 
  Country: FI (occurrence: FI)
  Receive Date: 20121017
  Receipt Date: 20121017
  Transmission Date: 20130627
  Serious: Yes (Hospitalization, Other)
  Sender: FDA-Public Use
  Company Number: FI-VERTEX PHARMACEUTICAL INC.-000000000000000998

PATIENT
  Age: 57 Year
  Sex: Female

DRUGS (4)
  1. INCIVO [Suspect]
     Indication: HEPATITIS C
     Dosage: Dosage Form: Tablet
     Route: 048
     Dates: start: 20120313, end: 20120522
  2. INCIVO [Suspect]
     Dosage: Dosage Form: Tablet
     Dates: start: 20120313, end: 20120523
  3. PEGASYS [Suspect]
     Indication: HEPATITIS C
     Dosage: 135 ?g, qw
     Route: 058
     Dates: start: 20111202
  4. COPEGUS [Suspect]
     Indication: HEPATITIS C
     Dosage: 200 mg, bid
     Dates: start: 20111202

REACTIONS (9)
  - Erysipelas [Recovered/Resolved]
  - Rash erythematous [Recovered/Resolved]
  - Drug reaction with eosinophilia and systemic symptoms [Recovered/Resolved]
  - Rash generalised [Recovered/Resolved]
  - Anaemia [Recovered/Resolved]
  - Acne [Recovered/Resolved]
  - Pyrexia [Recovered/Resolved]
  - Leukopenia [Recovered/Resolved]
  - Swelling face [Recovered/Resolved]
